FAERS Safety Report 5223166-2 (Version None)
Quarter: 2007Q1

REPORT INFORMATION
  Report Type: 
  Country: None (occurrence: None)
  Receive Date: 20061201
  Receipt Date: 20060828
  Transmission Date: 20070707
  Serious: No
  Sender: FDA-Public Use
  Company Number: 2006PV008428

PATIENT
  Age: 62 Year
  Sex: Female
  Weight: 77.1115 kg

DRUGS (12)
  1. BYETTA [Suspect]
     Indication: DIABETES MELLITUS NON-INSULIN-DEPENDENT
     Dosage: 10 MCG;BID;SC 5 MCG;BID;SC 5 MCG;BID;SC
     Route: 058
     Dates: start: 20060101, end: 20060201
  2. BYETTA [Suspect]
     Indication: DIABETES MELLITUS NON-INSULIN-DEPENDENT
     Dosage: 10 MCG;BID;SC 5 MCG;BID;SC 5 MCG;BID;SC
     Route: 058
     Dates: start: 20060203, end: 20060201
  3. BYETTA [Suspect]
     Indication: DIABETES MELLITUS NON-INSULIN-DEPENDENT
     Dosage: 10 MCG;BID;SC 5 MCG;BID;SC 5 MCG;BID;SC
     Route: 058
     Dates: start: 20060201
  4. BYETTA [Suspect]
  5. METFORMIN HCL [Suspect]
     Dosage: 500 MG;TID;PO 1500 MG;HS;PO
     Route: 048
     Dates: end: 20060203
  6. METFORMIN HCL [Suspect]
     Dosage: 500 MG;TID;PO 1500 MG;HS;PO
     Route: 048
     Dates: start: 20060203
  7. GLUCOPHAGE XR [Concomitant]
  8. GLUCOPHAGE [Concomitant]
  9. AMARYL [Concomitant]
  10. METFORMIN SR [Concomitant]
  11. ASPIRIN [Concomitant]
  12. PROZAC [Concomitant]

REACTIONS (10)
  - ABDOMINAL DISTENSION [None]
  - ANOREXIA [None]
  - DECREASED APPETITE [None]
  - DIARRHOEA [None]
  - FLATULENCE [None]
  - INJECTION SITE BRUISING [None]
  - NAUSEA [None]
  - ORAL PRURITUS [None]
  - VOMITING [None]
  - WEIGHT DECREASED [None]
